FAERS Safety Report 18253617 (Version 1)
Quarter: 2020Q3

REPORT INFORMATION
  Report Type: Spontaneous
  Country: CN (occurrence: CN)
  Receive Date: 20200910
  Receipt Date: 20200910
  Transmission Date: 20201103
  Serious: Yes (Hospitalization)
  Sender: FDA-Public Use
  Company Number: CN-PFIZER INC-2020348147

PATIENT
  Age: 55 Year
  Sex: Female
  Weight: 55 kg

DRUGS (1)
  1. DACOMITINIB [Suspect]
     Active Substance: DACOMITINIB
     Indication: TARGETED CANCER THERAPY
     Dosage: 30 MG, 1X/DAY
     Route: 048
     Dates: start: 20200717, end: 20200823

REACTIONS (6)
  - Swelling face [Recovering/Resolving]
  - Blepharospasm [Unknown]
  - Rash pruritic [Recovering/Resolving]
  - Pruritus [Recovering/Resolving]
  - Mouth ulceration [Unknown]
  - Swelling [Recovering/Resolving]

NARRATIVE: CASE EVENT DATE: 20200823
